FAERS Safety Report 20776256 (Version 7)
Quarter: 2022Q3

REPORT INFORMATION
  Report Type: Report from Study
  Country: CN (occurrence: CN)
  Receive Date: 20220502
  Receipt Date: 20220916
  Transmission Date: 20221027
  Serious: Yes (Other)
  Sender: FDA-Public Use
  Company Number: CN-TAKEDA-2022TUS028124

PATIENT
  Age: 32 Year
  Sex: Female
  Weight: 55 kg

DRUGS (26)
  1. BRENTUXIMAB VEDOTIN [Suspect]
     Active Substance: BRENTUXIMAB VEDOTIN
     Indication: Anaplastic large-cell lymphoma
     Dosage: 100 MILLIGRAM
     Route: 041
     Dates: start: 20220125
  2. CYCLOPHOSPHAMIDE [Suspect]
     Active Substance: CYCLOPHOSPHAMIDE
     Indication: Anaplastic large-cell lymphoma
     Dosage: 1.2 GRAM, 1/WEEK
     Route: 042
     Dates: start: 20220121, end: 20220125
  3. CYCLOPHOSPHAMIDE [Suspect]
     Active Substance: CYCLOPHOSPHAMIDE
     Indication: Lymphoma
     Dosage: 1.2 GRAM, QD
     Route: 042
     Dates: start: 20220124, end: 20220215
  4. CYCLOPHOSPHAMIDE [Suspect]
     Active Substance: CYCLOPHOSPHAMIDE
     Dosage: 1.2 GRAM, QD
     Route: 042
     Dates: start: 20220308, end: 20220308
  5. CYCLOPHOSPHAMIDE [Suspect]
     Active Substance: CYCLOPHOSPHAMIDE
     Dosage: 1.2 GRAM, QD
     Route: 042
     Dates: start: 20220404, end: 20220404
  6. CYCLOPHOSPHAMIDE [Suspect]
     Active Substance: CYCLOPHOSPHAMIDE
     Dosage: 1.2 GRAM, QD
     Route: 042
     Dates: start: 20220427, end: 20220427
  7. CYCLOPHOSPHAMIDE [Suspect]
     Active Substance: CYCLOPHOSPHAMIDE
     Dosage: 1.2 GRAM, QD
     Route: 042
     Dates: start: 20220518, end: 20220518
  8. DOXORUBICIN HYDROCHLORIDE [Suspect]
     Active Substance: DOXORUBICIN HYDROCHLORIDE
     Indication: Lymphoma
     Dosage: 40 MILLIGRAM, QD
     Route: 042
     Dates: start: 20220124, end: 20220124
  9. DOXORUBICIN HYDROCHLORIDE [Suspect]
     Active Substance: DOXORUBICIN HYDROCHLORIDE
     Dosage: 40 MILLIGRAM, QD
     Route: 042
     Dates: start: 20220215, end: 20220215
  10. DOXORUBICIN HYDROCHLORIDE [Suspect]
     Active Substance: DOXORUBICIN HYDROCHLORIDE
     Dosage: 40 MILLIGRAM, QD
     Route: 042
     Dates: start: 20220308, end: 20220308
  11. DOXORUBICIN HYDROCHLORIDE [Suspect]
     Active Substance: DOXORUBICIN HYDROCHLORIDE
     Dosage: 40 MILLIGRAM, QD
     Route: 042
     Dates: start: 20220404, end: 20220404
  12. DOXORUBICIN HYDROCHLORIDE [Suspect]
     Active Substance: DOXORUBICIN HYDROCHLORIDE
     Dosage: 40 MILLIGRAM, QD
     Route: 042
     Dates: start: 20220427, end: 20220427
  13. DOXORUBICIN HYDROCHLORIDE [Suspect]
     Active Substance: DOXORUBICIN HYDROCHLORIDE
     Dosage: 40 MILLIGRAM, QD
     Route: 042
     Dates: start: 20220518, end: 20220518
  14. PREDNISONE ACETATE [Suspect]
     Active Substance: PREDNISONE ACETATE
     Indication: Anaplastic large-cell lymphoma
     Dosage: 100 MILLIGRAM, QD
     Route: 048
     Dates: start: 20220124, end: 20220126
  15. PREDNISONE ACETATE [Suspect]
     Active Substance: PREDNISONE ACETATE
     Indication: Lymphoma
     Dosage: 100 MILLIGRAM, QD
     Route: 048
     Dates: start: 20220215, end: 20220219
  16. PREDNISONE ACETATE [Suspect]
     Active Substance: PREDNISONE ACETATE
     Dosage: 100 MILLIGRAM, QD
     Route: 048
     Dates: start: 20220308, end: 20220312
  17. PREDNISONE ACETATE [Suspect]
     Active Substance: PREDNISONE ACETATE
     Dosage: 100 MILLIGRAM, QD
     Route: 042
     Dates: start: 20220427, end: 20220501
  18. PREDNISONE ACETATE [Suspect]
     Active Substance: PREDNISONE ACETATE
     Dosage: 100 MILLIGRAM, QD
     Route: 048
     Dates: start: 20220518, end: 20220522
  19. IBANDRONATE SODIUM [Concomitant]
     Active Substance: IBANDRONATE SODIUM
     Indication: Bone density increased
     Dosage: 4 MILLIGRAM, QD
     Route: 042
     Dates: start: 20220126, end: 20220126
  20. DEXAMETHASONE SODIUM PHOSPHATE [Concomitant]
     Active Substance: DEXAMETHASONE SODIUM PHOSPHATE
     Indication: Allergy prophylaxis
     Dosage: 5 MILLIGRAM, QD
     Route: 042
     Dates: start: 20220126, end: 20220126
  21. SODIUM BICARBONATE [Concomitant]
     Active Substance: SODIUM BICARBONATE
     Indication: Urine alkalinisation therapy
     Dosage: 125 MILLILITER, QD
     Route: 042
     Dates: start: 20220214, end: 20220215
  22. SODIUM BICARBONATE [Concomitant]
     Active Substance: SODIUM BICARBONATE
     Dosage: 125 MILLILITER, QD
     Route: 042
     Dates: start: 20220307, end: 20220308
  23. SODIUM BICARBONATE [Concomitant]
     Active Substance: SODIUM BICARBONATE
     Dosage: 125 MILLILITER, QD
     Route: 042
     Dates: start: 20220331, end: 20220331
  24. PANTOPRAZOLE SODIUM [Concomitant]
     Active Substance: PANTOPRAZOLE SODIUM
     Indication: Prophylaxis
     Dosage: 40 MILLIGRAM, QD
     Route: 042
     Dates: start: 20220215, end: 20220215
  25. PANTOPRAZOLE SODIUM [Concomitant]
     Active Substance: PANTOPRAZOLE SODIUM
     Dosage: 40 MILLIGRAM, QD
     Route: 042
     Dates: start: 20220308, end: 20220308
  26. PANTOPRAZOLE SODIUM [Concomitant]
     Active Substance: PANTOPRAZOLE SODIUM
     Dosage: 40 MILLIGRAM, QD
     Route: 042
     Dates: start: 20220404, end: 20220404

REACTIONS (5)
  - Drug-induced liver injury [Recovered/Resolved]
  - White blood cell count increased [Recovered/Resolved]
  - Neutrophil count increased [Recovered/Resolved]
  - Nausea [Recovered/Resolved]
  - Off label use [Unknown]

NARRATIVE: CASE EVENT DATE: 20220125
